FAERS Safety Report 4821755-8 (Version None)
Quarter: 2005Q4

REPORT INFORMATION
  Report Type: 
  Country: None (occurrence: None)
  Receive Date: 20051107
  Receipt Date: 20050825
  Transmission Date: 20060501
  Serious: Yes (Hospitalization, Other)
  Sender: FDA-Public Use
  Company Number: FRWYE931625AUG05

PATIENT
  Sex: Male
  Weight: 78 kg

DRUGS (10)
  1. ENBREL [Suspect]
     Indication: RHEUMATOID ARTHRITIS
     Route: 058
     Dates: start: 20040602, end: 20050620
  2. CORTANCYL [Concomitant]
     Route: 048
     Dates: start: 19950101
  3. ACETYLSALICYLATE LYSINE [Concomitant]
     Dates: start: 20041001
  4. OMEPRAZOLE [Concomitant]
     Dates: start: 20041001, end: 20050701
  5. POTASSIUM CHLORIDE [Concomitant]
     Dates: start: 20041001
  6. VITAMIN D3 [Concomitant]
     Dates: start: 20041001
  7. ACTONEL [Concomitant]
     Dates: start: 20041001
  8. CALCIUM GLUCONATE [Concomitant]
  9. ATORVASTATIN CALCIUM [Concomitant]
     Dates: start: 20050201
  10. DOXAZOSIN [Concomitant]
     Dates: start: 20040601

REACTIONS (16)
  - AORTIC DILATATION [None]
  - APHASIA [None]
  - CAROTID ARTERY ATHEROMA [None]
  - CEREBRAL INFARCTION [None]
  - CERVICAL MYELOPATHY [None]
  - DEPRESSION [None]
  - ERECTILE DYSFUNCTION [None]
  - HAEMATOMA [None]
  - HEMIPARESIS [None]
  - INCONTINENCE [None]
  - MICTURITION URGENCY [None]
  - MUSCULAR WEAKNESS [None]
  - MYELITIS TRANSVERSE [None]
  - PARAESTHESIA [None]
  - PARAPARESIS [None]
  - PYREXIA [None]
